FAERS Safety Report 5017463-3 (Version None)
Quarter: 2006Q2

REPORT INFORMATION
  Report Type: 
  Country: None (occurrence: None)
  Receive Date: 20060414
  Receipt Date: 20060224
  Transmission Date: 20061013
  Serious: No
  Sender: FDA-Public Use
  Company Number: 2006SP000934

PATIENT
  Age: 83 Year
  Sex: Female
  Weight: 47.6277 kg

DRUGS (5)
  1. LUNESTA [Suspect]
     Indication: INSOMNIA
     Dosage: 1 MG, PRN; ORAL;, 2 MG; PRN; ORAL
     Route: 048
     Dates: start: 20051001, end: 20051101
  2. LUNESTA [Suspect]
     Indication: INSOMNIA
     Dosage: 1 MG, PRN; ORAL;, 2 MG; PRN; ORAL
     Route: 048
     Dates: start: 20051101, end: 20060201
  3. ACEON [Concomitant]
  4. PRILOSEC [Concomitant]
  5. AMIODARONE HCL [Concomitant]

REACTIONS (3)
  - DRUG ERUPTION [None]
  - INSOMNIA [None]
  - RASH [None]
